FAERS Safety Report 7345008-1 (Version None)
Quarter: 2011Q1

REPORT INFORMATION
  Report Type: 
  Country: None (occurrence: None)
  Receive Date: 20110302
  Receipt Date: 20110214
  Transmission Date: 20110831
  Serious: Yes (Other)
  Sender: FDA-Public Use
  Company Number: DSA_44967_2011

PATIENT
  Sex: Male

DRUGS (1)
  1. NIFEDIAC (NOT SPECIFIED) [Suspect]
     Indication: PRODUCT USED FOR UNKNOWN INDICATION
     Dosage: (DF)

REACTIONS (3)
  - SWOLLEN TONGUE [None]
  - SPEECH DISORDER [None]
  - DYSPHAGIA [None]
